FAERS Safety Report 7049770-7 (Version None)
Quarter: 2010Q4

REPORT INFORMATION
  Report Type: 
  Country: None (occurrence: None)
  Receive Date: 20101018
  Receipt Date: 20101013
  Transmission Date: 20110411
  Serious: Yes (Hospitalization)
  Sender: FDA-Public Use
  Company Number: DE-BAYER-201042380GPV

PATIENT
  Age: 74 Year
  Sex: Female
  Weight: 83 kg

DRUGS (17)
  1. ASPIRIN [Suspect]
     Indication: ANGINA UNSTABLE
     Dosage: TOTAL DAILY DOSE: 100 MG
     Route: 048
  2. ANGIOMAX [Suspect]
     Indication: PERCUTANEOUS CORONARY INTERVENTION
     Route: 042
     Dates: start: 20091111, end: 20091111
  3. ANGIOMAX [Suspect]
     Route: 042
     Dates: start: 20091111, end: 20091111
  4. ANGIOMAX [Suspect]
     Route: 040
     Dates: start: 20091111, end: 20091111
  5. HEPARIN [Concomitant]
  6. ENOXAPARIN SODIUM [Concomitant]
  7. CLOPIDOGREL [Concomitant]
  8. BISOPROLOL [Concomitant]
     Dates: start: 20091011
  9. SIMVASTATIN [Concomitant]
     Dates: start: 20091011
  10. CARBIMAZOL [Concomitant]
     Dates: start: 20091011
  11. VASOMOTAL [Concomitant]
     Dates: start: 20091111
  12. RAMIPRIL [Concomitant]
     Dates: start: 20091011
  13. RANITIDINE [Concomitant]
     Dates: start: 20091111
  14. CIPRAMIL [Concomitant]
     Indication: DEPRESSION
     Dates: start: 20091111
  15. PRASUGREL [Concomitant]
     Dates: start: 20091011
  16. TORASEMIDE [Concomitant]
     Dates: start: 20091111
  17. LERCANIDIPIN [Concomitant]

REACTIONS (2)
  - GASTRITIS [None]
  - MENIERE'S DISEASE [None]
